FAERS Safety Report 7607308-7 (Version None)
Quarter: 2011Q3

REPORT INFORMATION
  Report Type: 
  Country: None (occurrence: None)
  Receive Date: 20110713
  Receipt Date: 20110711
  Transmission Date: 20111222
  Serious: Yes (Hospitalization, Other)
  Sender: FDA-Public Use
  Company Number: CA-NAPPMUNDI-CAN-2011-0002006

PATIENT
  Age: 66 Year
  Sex: Female
  Weight: 58.1 kg

DRUGS (14)
  1. OXYCODONE HCL [Suspect]
     Dosage: 5 MG, Q1H PRN
     Route: 048
     Dates: start: 20110513
  2. VENLAFAXINE [Concomitant]
     Indication: HOT FLUSH
  3. COPAXONE [Concomitant]
     Indication: MULTIPLE SCLEROSIS
  4. SENOKOT [Concomitant]
     Indication: CONSTIPATION
  5. ATENOLOL [Concomitant]
     Indication: HYPERTENSION
  6. ALENDRONATE SODIUM [Concomitant]
     Indication: OSTEOPOROSIS
  7. PREDNISONE [Concomitant]
     Indication: MULTIPLE SCLEROSIS
  8. DOCUSATE [Concomitant]
     Indication: CONSTIPATION
  9. TAMOXIFEN CITRATE [Concomitant]
     Indication: BREAST CANCER
     Dosage: UNK
     Dates: start: 20110502
  10. LORAZEPAM [Concomitant]
     Indication: INSOMNIA
  11. GABAPENTIN [Suspect]
     Indication: PAIN
     Dosage: 300 MG, 2-3 TIMES DAILY
     Route: 048
     Dates: start: 20110323
  12. EXEMESTANE [Suspect]
     Indication: BREAST CANCER
     Dosage: 25 MG, DAILY
     Route: 048
     Dates: start: 20090715, end: 20110502
  13. POLYETHYLENE GLYCOL [Concomitant]
     Indication: CONSTIPATION
  14. OXYCODONE HCL [Suspect]
     Indication: PAIN
     Dosage: 7.5 MG, Q4H
     Route: 048
     Dates: start: 20110513

REACTIONS (4)
  - ASTHENIA [None]
  - FALL [None]
  - SOMNOLENCE [None]
  - CONFUSIONAL STATE [None]
